FAERS Safety Report 7116100-1 (Version None)
Quarter: 2010Q4

REPORT INFORMATION
  Report Type: 
  Country: None (occurrence: None)
  Receive Date: 20101115
  Receipt Date: 20101108
  Transmission Date: 20110411
  Serious: Yes (Death, Hospitalization)
  Sender: FDA-Public Use
  Company Number: 2010AC000105

PATIENT
  Age: 55 Year
  Sex: Male

DRUGS (12)
  1. DIGOXIN [Suspect]
     Dosage: PO
     Route: 048
     Dates: start: 20020201
  2. DIGOXIN [Suspect]
     Dosage: 0.250 MG; QD; PO
     Route: 048
     Dates: start: 19970801
  3. *METOPROLOL [Concomitant]
  4. ZESTRIL [Concomitant]
  5. ASPIRIN [Concomitant]
  6. COUMADIN [Concomitant]
  7. PREDNISONE [Concomitant]
  8. CAPTOPRIL [Concomitant]
  9. ZETIA [Concomitant]
  10. WELCHOL [Concomitant]
  11. LIPITOR [Concomitant]
  12. LASIX [Concomitant]

REACTIONS (25)
  - ALANINE AMINOTRANSFERASE INCREASED [None]
  - AORTIC ARTERIOSCLEROSIS [None]
  - AORTIC VALVE INCOMPETENCE [None]
  - ARTERIOSCLEROSIS [None]
  - ASPARTATE AMINOTRANSFERASE INCREASED [None]
  - BLOOD CHOLESTEROL INCREASED [None]
  - BLOOD TRIGLYCERIDES INCREASED [None]
  - CARDIO-RESPIRATORY ARREST [None]
  - DRUG INTOLERANCE [None]
  - ECONOMIC PROBLEM [None]
  - GALLOP RHYTHM PRESENT [None]
  - HYPERTENSIVE HEART DISEASE [None]
  - HYPOAESTHESIA [None]
  - INTERMITTENT CLAUDICATION [None]
  - ISCHAEMIC CARDIOMYOPATHY [None]
  - LEFT ATRIAL DILATATION [None]
  - MITRAL VALVE INCOMPETENCE [None]
  - MULTIPLE INJURIES [None]
  - MUSCLE SPASMS [None]
  - MYOCARDIAL INFARCTION [None]
  - PARAESTHESIA [None]
  - PARTNER STRESS [None]
  - PROTEIN TOTAL INCREASED [None]
  - TRICUSPID VALVE INCOMPETENCE [None]
  - VENTRICULAR HYPOKINESIA [None]
